FAERS Safety Report 4655895-3 (Version None)
Quarter: 2005Q2

REPORT INFORMATION
  Report Type: 
  Country: None (occurrence: None)
  Receive Date: 20050509
  Receipt Date: 20040802
  Transmission Date: 20051028
  Serious: Yes (Hospitalization)
  Sender: FDA-Public Use
  Company Number: AR-ABBOTT-04P-007-0268775-00

PATIENT
  Sex: Male

DRUGS (8)
  1. RITONAVIR SOFT GELATIN CAPSULES [Suspect]
     Indication: HIV INFECTION
     Route: 048
     Dates: start: 20031006, end: 20040707
  2. LOPERAMIDE HCL [Concomitant]
     Indication: DRUG USE FOR UNKNOWN INDICATION
     Route: 048
     Dates: start: 20040714, end: 20040720
  3. LOPERAMIDE HCL [Concomitant]
     Route: 048
     Dates: start: 20040729, end: 20040923
  4. TIPRANAVIR [Concomitant]
     Indication: HIV INFECTION
     Dates: start: 20031006, end: 20040707
  5. ZIDOVUDINE [Concomitant]
     Indication: ANTIVIRAL PROPHYLAXIS
  6. TENOFOVIR [Concomitant]
     Indication: ANTIVIRAL PROPHYLAXIS
  7. LAMIVUDINE [Concomitant]
     Indication: ANTIVIRAL PROPHYLAXIS
  8. OMEPRAZOLE [Concomitant]
     Indication: DRUG USE FOR UNKNOWN INDICATION
     Dates: start: 20040824, end: 20040925

REACTIONS (1)
  - MEGACOLON [None]
